FAERS Safety Report 7880940-1 (Version None)
Quarter: 2011Q4

REPORT INFORMATION
  Report Type: 
  Country: None (occurrence: None)
  Receive Date: 20111101
  Receipt Date: 20111021
  Transmission Date: 20120403
  Serious: Yes (Hospitalization)
  Sender: FDA-Public Use
  Company Number: NL-BAXTER-2011BH033396

PATIENT
  Age: 18 Year
  Sex: Female

DRUGS (6)
  1. URSODIOL [Concomitant]
     Indication: PRODUCT USED FOR UNKNOWN INDICATION
     Route: 065
  2. VITAMIN TAB [Concomitant]
     Indication: PRODUCT USED FOR UNKNOWN INDICATION
     Route: 065
  3. ANTIBIOTICS [Concomitant]
     Indication: PRODUCT USED FOR UNKNOWN INDICATION
     Route: 065
  4. GAMMAGARD LIQUID [Suspect]
     Indication: IMMUNE SYSTEM DISORDER
     Dosage: X PER 35 DAGEN
     Route: 042
     Dates: start: 20100728, end: 20110812
  5. GAMMAGARD LIQUID [Suspect]
     Dosage: X PER 35 DAGEN
     Route: 042
     Dates: start: 20110916, end: 20110916
  6. GAMMAGARD LIQUID [Suspect]
     Dosage: X PER 35 DAGEN
     Route: 042
     Dates: start: 20110916, end: 20110916

REACTIONS (2)
  - WEIGHT DECREASED [None]
  - RESPIRATORY TRACT INFECTION [None]
